FAERS Safety Report 9775836 (Version 1)
Quarter: 2013Q4

REPORT INFORMATION
  Report Type: Spontaneous
  Country: FR (occurrence: FR)
  Receive Date: 20131220
  Receipt Date: 20131220
  Transmission Date: 20140711
  Serious: Yes (Hospitalization)
  Sender: FDA-Public Use
  Company Number: FR-MYLANLABS-2013S1027539

PATIENT
  Age: 89 Year
  Sex: Female

DRUGS (12)
  1. BISOPROLOL [Suspect]
     Indication: PRODUCT USED FOR UNKNOWN INDICATION
     Route: 048
  2. ATARAX [Suspect]
     Indication: PRODUCT USED FOR UNKNOWN INDICATION
     Route: 048
  3. COAPROVEL [Suspect]
     Indication: PRODUCT USED FOR UNKNOWN INDICATION
     Route: 048
  4. HUMALOG [Concomitant]
     Indication: PRODUCT USED FOR UNKNOWN INDICATION
  5. LANTUS [Concomitant]
     Indication: PRODUCT USED FOR UNKNOWN INDICATION
  6. ATROVENT [Concomitant]
     Indication: PRODUCT USED FOR UNKNOWN INDICATION
  7. CORTANCYL [Concomitant]
     Indication: PRODUCT USED FOR UNKNOWN INDICATION
  8. FORLAX /00754501/ [Concomitant]
     Indication: PRODUCT USED FOR UNKNOWN INDICATION
  9. PROPYLTHIOURACILE [Concomitant]
     Indication: PRODUCT USED FOR UNKNOWN INDICATION
  10. TARDYFERON B9 /00023601/ [Concomitant]
     Indication: PRODUCT USED FOR UNKNOWN INDICATION
  11. UVEDOSE [Concomitant]
     Indication: PRODUCT USED FOR UNKNOWN INDICATION
  12. XARELTO [Concomitant]
     Indication: PRODUCT USED FOR UNKNOWN INDICATION

REACTIONS (3)
  - Fall [Recovered/Resolved]
  - Craniocerebral injury [Recovered/Resolved]
  - Femur fracture [Recovering/Resolving]
